FAERS Safety Report 13902073 (Version 1)
Quarter: 2017Q3

REPORT INFORMATION
  Report Type: Spontaneous
  Country: US (occurrence: US)
  Receive Date: 20170824
  Receipt Date: 20170824
  Transmission Date: 20171127
  Serious: No
  Sender: FDA-Public Use
  Company Number: US-BIOGEN-2013BI040894

PATIENT
  Sex: Female

DRUGS (4)
  1. AVONEX [Suspect]
     Active Substance: INTERFERON BETA-1A
     Indication: MULTIPLE SCLEROSIS
     Route: 030
     Dates: start: 19960610
  2. AVONEX [Suspect]
     Active Substance: INTERFERON BETA-1A
     Route: 030
     Dates: end: 19980610
  3. AVONEX [Suspect]
     Active Substance: INTERFERON BETA-1A
     Route: 030
     Dates: start: 19970715
  4. AVONEX [Suspect]
     Active Substance: INTERFERON BETA-1A
     Route: 030
     Dates: end: 19980715

REACTIONS (24)
  - Tension [Unknown]
  - Neck pain [Unknown]
  - Pain [Unknown]
  - Back pain [Unknown]
  - Malaise [Unknown]
  - Injection site pain [Recovered/Resolved]
  - Balance disorder [Not Recovered/Not Resolved]
  - Confusional state [Unknown]
  - Paraesthesia [Unknown]
  - Anxiety [Recovered/Resolved]
  - Dizziness [Not Recovered/Not Resolved]
  - Musculoskeletal stiffness [Unknown]
  - Nervousness [Recovered/Resolved]
  - Sinusitis [Unknown]
  - Headache [Not Recovered/Not Resolved]
  - Feeling abnormal [Unknown]
  - Nausea [Not Recovered/Not Resolved]
  - Emotional distress [Unknown]
  - Influenza like illness [Recovered/Resolved]
  - Toothache [Unknown]
  - Temperature intolerance [Unknown]
  - Peripheral coldness [Unknown]
  - Neuralgia [Unknown]
  - Multiple sclerosis [Unknown]
